FAERS Safety Report 9816342 (Version 1)
Quarter: 2014Q1

REPORT INFORMATION
  Report Type: Spontaneous
  Country: US (occurrence: US)
  Receive Date: 20140114
  Receipt Date: 20140114
  Transmission Date: 20141002
  Serious: No
  Sender: FDA-Public Use
  Company Number: US-TEVA-455887USA

PATIENT
  Age: 25 Year
  Sex: Female
  Weight: 58.11 kg

DRUGS (2)
  1. PARAGARD 380A [Suspect]
     Indication: CONTRACEPTION
     Route: 015
     Dates: start: 20131122, end: 20131220
  2. IRON [Concomitant]
     Indication: ANAEMIA

REACTIONS (2)
  - Metrorrhagia [Recovered/Resolved]
  - Device expulsion [Recovered/Resolved]
